FAERS Safety Report 6840128-X (Version None)
Quarter: 2010Q2

REPORT INFORMATION
  Report Type: 
  Country: None (occurrence: None)
  Receive Date: 20100629
  Receipt Date: 20100308
  Transmission Date: 20101027
  Serious: No
  Sender: FDA-Public Use
  Company Number: US-WYE-H13974410

PATIENT
  Sex: Male

DRUGS (12)
  1. PRISTIQ [Suspect]
     Indication: DEPRESSION
     Dates: start: 20080101
  2. NASONEX [Concomitant]
  3. CRESTOR [Concomitant]
  4. NEXIUM [Concomitant]
  5. VICODIN [Concomitant]
  6. SKELAXIN [Concomitant]
  7. KLONOPIN [Concomitant]
  8. AMBIEN CR [Concomitant]
  9. ZYRTEC [Concomitant]
  10. SUCRALFATE [Concomitant]
  11. CENTRUM SILVER (MULTIVITAMIN/MULTIMINERAL) [Concomitant]
  12. VITAMIN D [Concomitant]

REACTIONS (1)
  - ORAL MUCOSAL EXFOLIATION [None]
